FAERS Safety Report 6434707-1 (Version None)
Quarter: 2009Q4

REPORT INFORMATION
  Report Type: 
  Country: None (occurrence: None)
  Receive Date: 20091109
  Receipt Date: 20091109
  Transmission Date: 20100525
  Serious: Yes (Hospitalization)
  Sender: FDA-Public Use
  Company Number: None

PATIENT
  Age: 66 Year
  Sex: Female
  Weight: 137 kg

DRUGS (15)
  1. ^CORTISONE INJECTION^ UNKNOWN [Suspect]
     Indication: GOUT
     Dosage: UNKNOWN ONE TIME INTRA-ARTICULAR ONE TIME
     Route: 014
  2. COLCHICINE UNKNOWN [Suspect]
     Indication: GOUT
     Dosage: UNKNOWN PRN PO PRIOR TO ADMISSION
     Route: 048
  3. ASPIRIN [Concomitant]
  4. BRIMATOPROST OPHTHALMIC DROPS [Concomitant]
  5. FLUTICASONE/SALMETEROL INHALER [Concomitant]
  6. FUROSEMIDE [Concomitant]
  7. IMIPRAMINE [Concomitant]
  8. LEVOTHYROXINE SODIUM [Concomitant]
  9. MONTELUKAST SODIUM [Concomitant]
  10. ALBUTEROL/IPRATROPIUM INHALER [Concomitant]
  11. INSULIN GLARINE [Concomitant]
  12. INSULIN ASPART [Concomitant]
  13. SITAGLIPTIN [Concomitant]
  14. POTASSIUM CHLORIDE [Concomitant]
  15. PREVACID [Concomitant]

REACTIONS (2)
  - BLOOD GLUCOSE ABNORMAL [None]
  - HYPERSENSITIVITY [None]
